FAERS Safety Report 21834070 (Version 5)
Quarter: 2023Q4

REPORT INFORMATION
  Report Type: Spontaneous
  Country: US (occurrence: None)
  Receive Date: 20230108
  Receipt Date: 20231010
  Transmission Date: 20240109
  Serious: Yes (Hospitalization, Other)
  Sender: FDA-Public Use
  Company Number: US-ROCHE-3080592

PATIENT
  Age: 59 Year
  Sex: Male

DRUGS (6)
  1. HEMLIBRA [Suspect]
     Active Substance: EMICIZUMAB-KXWH
     Indication: Factor VIII deficiency
     Dosage: STRENGTH : 60MG/0.4 ML?SUBSEQUENT DOSE RECEIVED ON 24/SEP/2020, 01/JAN/2021, 08/SEP/2022.
     Route: 058
     Dates: start: 20200923
  2. HEMLIBRA [Suspect]
     Active Substance: EMICIZUMAB-KXWH
     Indication: Gastrointestinal inflammation
     Dosage: FORM STRENGTH : 60MG/0.4ML
     Route: 058
     Dates: start: 20220809
  3. HEMLIBRA [Suspect]
     Active Substance: EMICIZUMAB-KXWH
     Indication: Colitis
     Dosage: FORM STRENGTH : 60MG/0.4ML
     Route: 058
     Dates: start: 20200922
  4. HEMLIBRA [Suspect]
     Active Substance: EMICIZUMAB-KXWH
     Indication: Factor VIII deficiency
     Dosage: STRENGTH : 60MG/0.4ML
     Route: 058
     Dates: start: 202009
  5. HEMLIBRA [Suspect]
     Active Substance: EMICIZUMAB-KXWH
     Route: 058
     Dates: start: 20230213
  6. HEMLIBRA [Suspect]
     Active Substance: EMICIZUMAB-KXWH
     Route: 058
     Dates: start: 201210

REACTIONS (3)
  - Haemarthrosis [Recovered/Resolved]
  - Memory impairment [Unknown]
  - Cataract [Unknown]

NARRATIVE: CASE EVENT DATE: 20220417
